FAERS Safety Report 4874138-9 (Version None)
Quarter: 2006Q1

REPORT INFORMATION
  Report Type: 
  Country: None (occurrence: None)
  Receive Date: 20060106
  Receipt Date: 20051201
  Transmission Date: 20060701
  Serious: Yes (Other)
  Sender: FDA-Public Use
  Company Number: US-GLAXOSMITHKLINE-A0584276A

PATIENT
  Age: 58 Year
  Sex: Female
  Weight: 111.4 kg

DRUGS (11)
  1. AVANDIA [Suspect]
     Dosage: 4MG PER DAY
     Route: 048
     Dates: start: 20050701, end: 20051101
  2. PROLEUKIN [Concomitant]
     Dates: start: 20050615, end: 20050915
  3. ZYRTEC [Concomitant]
     Indication: MULTIPLE ALLERGIES
     Dosage: 10MG PER DAY
     Route: 048
     Dates: start: 20040701
  4. ATENOLOL [Concomitant]
     Indication: HYPERTENSION
     Dosage: 25MG PER DAY
     Route: 048
  5. TOPAMAX [Concomitant]
     Indication: MIGRAINE PROPHYLAXIS
     Dosage: 100MG PER DAY
     Route: 048
  6. L-THYROXINE [Concomitant]
     Dosage: .15MG PER DAY
     Route: 048
     Dates: start: 19690101
  7. EVISTA [Concomitant]
     Indication: PROPHYLAXIS
     Dosage: 60MG PER DAY
     Route: 048
  8. TRIMETHOPRIM [Concomitant]
     Indication: INFECTION PROPHYLAXIS
     Dosage: 100MG TWICE PER DAY
     Route: 048
  9. NEXIUM [Concomitant]
     Dosage: 40MG PER DAY
     Route: 048
  10. VITAMIN B6 [Concomitant]
     Indication: NEUROPATHY
     Dosage: 50MG PER DAY
     Route: 048
  11. MULTI-VITAMIN [Concomitant]
     Dosage: 1TAB PER DAY
     Route: 048

REACTIONS (6)
  - ANAPHYLACTIC REACTION [None]
  - CHEST DISCOMFORT [None]
  - COUGH [None]
  - DYSPNOEA [None]
  - DYSPNOEA EXERTIONAL [None]
  - WHEEZING [None]
